FAERS Safety Report 16207607 (Version 5)
Quarter: 2019Q3

REPORT INFORMATION
  Report Type: Spontaneous
  Country: US (occurrence: US)
  Receive Date: 20190417
  Receipt Date: 20190830
  Transmission Date: 20191004
  Serious: No
  Sender: FDA-Public Use
  Company Number: US-PFIZER INC-2019163276

PATIENT
  Age: 43 Year
  Sex: Female

DRUGS (2)
  1. XELJANZ XR [Suspect]
     Active Substance: TOFACITINIB CITRATE
     Indication: RHEUMATOID ARTHRITIS
     Dosage: 11 MG, UNK
     Dates: start: 20180910
  2. XELJANZ XR [Suspect]
     Active Substance: TOFACITINIB CITRATE
     Dosage: 11 MG, 1X/DAY
     Route: 048
     Dates: start: 20181009

REACTIONS (15)
  - Headache [Unknown]
  - Dysphonia [Unknown]
  - Nausea [Unknown]
  - Musculoskeletal stiffness [Unknown]
  - Sinus disorder [Unknown]
  - Acne [Unknown]
  - Mood altered [Unknown]
  - Oropharyngeal pain [Unknown]
  - Fatigue [Unknown]
  - Upper respiratory tract congestion [Unknown]
  - Throat irritation [Unknown]
  - Swelling [Unknown]
  - Secretion discharge [Unknown]
  - Dry eye [Unknown]
  - Constipation [Unknown]
